FAERS Safety Report 19185846 (Version 2)
Quarter: 2021Q2

REPORT INFORMATION
  Report Type: Spontaneous
  Country: JP (occurrence: JP)
  Receive Date: 20210427
  Receipt Date: 20210504
  Transmission Date: 20210717
  Serious: Yes (Other)
  Sender: FDA-Public Use
  Company Number: JP-STRIDES ARCOLAB LIMITED-2021SP004666

PATIENT
  Age: 68 Year
  Sex: Male

DRUGS (4)
  1. MESALAZINE [Concomitant]
     Active Substance: MESALAMINE
     Indication: COLITIS ULCERATIVE
     Dosage: UNK
     Route: 065
  2. INFLIXIMAB [Suspect]
     Active Substance: INFLIXIMAB
     Indication: COLITIS ULCERATIVE
     Dosage: 5 MILLIGRAM/KILOGRAM, BID
     Route: 065
  3. PREDNISOLONE. [Suspect]
     Active Substance: PREDNISOLONE
     Indication: COLITIS ULCERATIVE
     Dosage: 30?50 MILLIGRAM, PER DAY
     Route: 065
  4. AZATHIOPRINE. [Suspect]
     Active Substance: AZATHIOPRINE
     Indication: COLITIS ULCERATIVE
     Dosage: 25 MILLIGRAM, PER DAY (INITIAL DOSE)
     Route: 065

REACTIONS (5)
  - Off label use [Unknown]
  - Drug ineffective [Unknown]
  - Epstein Barr virus positive mucocutaneous ulcer [Recovered/Resolved]
  - Diffuse large B-cell lymphoma [Recovered/Resolved]
  - Cytomegalovirus infection [Recovered/Resolved]
